FAERS Safety Report 5671764-4 (Version None)
Quarter: 2008Q1

REPORT INFORMATION
  Report Type: 
  Country: None (occurrence: None)
  Receive Date: 20080318
  Receipt Date: 20080312
  Transmission Date: 20080703
  Serious: Yes (Death)
  Sender: FDA-Public Use
  Company Number: PT-BAXTER-2008BH002264

PATIENT
  Sex: Male

DRUGS (6)
  1. EXTRANEAL [Suspect]
     Indication: PERITONEAL DIALYSIS
     Route: 033
  2. PHYSIONEAL 40 VIAFLEX [Suspect]
     Indication: PERITONEAL DIALYSIS
     Route: 033
  3. INSULATARD [Concomitant]
     Indication: DIABETES MELLITUS
  4. ACTRAPID HUMAN [Concomitant]
     Indication: DIABETES MELLITUS
  5. ENALAPRIL MALEATE [Concomitant]
     Indication: HYPERTENSION
  6. CARVEDILOL [Concomitant]
     Indication: HYPERTENSION

REACTIONS (1)
  - ACUTE MYOCARDIAL INFARCTION [None]
